FAERS Safety Report 6463802-6 (Version None)
Quarter: 2009Q4

REPORT INFORMATION
  Report Type: 
  Country: None (occurrence: None)
  Receive Date: 20091130
  Receipt Date: 20091130
  Transmission Date: 20100525
  Serious: Yes (Hospitalization)
  Sender: FDA-Public Use
  Company Number: None

PATIENT
  Age: 87 Year
  Sex: Male

DRUGS (1)
  1. PHENYTOIN [Suspect]
     Indication: CONVULSION
     Dosage: 300 MG PM PO
     Route: 048
     Dates: start: 20090819, end: 20090830

REACTIONS (6)
  - ANTICONVULSANT DRUG LEVEL ABOVE THERAPEUTIC [None]
  - BRADYCARDIA [None]
  - CYANOSIS [None]
  - DRUG INTERACTION [None]
  - HYPOTENSION [None]
  - UNRESPONSIVE TO STIMULI [None]
